FAERS Safety Report 16449027 (Version 1)
Quarter: 2019Q2

REPORT INFORMATION
  Report Type: Spontaneous
  Country: US (occurrence: US)
  Receive Date: 20190619
  Receipt Date: 20190619
  Transmission Date: 20190711
  Serious: No
  Sender: FDA-Public Use
  Company Number: US-009507513-1905USA013841

PATIENT
  Sex: Female
  Weight: 99.77 kg

DRUGS (1)
  1. NEXPLANON [Suspect]
     Active Substance: ETONOGESTREL
     Dosage: 68 MILLIGRAM; LEFT ARM
     Route: 059
     Dates: start: 20180730, end: 20190515

REACTIONS (2)
  - Complication associated with device [Recovered/Resolved]
  - Device breakage [Recovered/Resolved]
